FAERS Safety Report 4737005-7 (Version None)
Quarter: 2005Q3

REPORT INFORMATION
  Report Type: 
  Country: None (occurrence: None)
  Receive Date: 20050802
  Receipt Date: 20050722
  Transmission Date: 20060218
  Serious: Yes (Hospitalization, Other)
  Sender: FDA-Public Use
  Company Number: KII-2005-0017724

PATIENT
  Age: 44 Year
  Sex: Male

DRUGS (3)
  1. MORPHINE SULFATE [Suspect]
     Dosage: ORAL
     Route: 048
  2. ETHANOL (ETHANOL) [Suspect]
     Dosage: ORAL
     Route: 048
  3. AMITRIPTYLINE HCL [Suspect]
     Dosage: ORAL
     Route: 048

REACTIONS (9)
  - AGITATION [None]
  - BLOOD PRESSURE INCREASED [None]
  - COMA [None]
  - DRUG INEFFECTIVE [None]
  - DYSARTHRIA [None]
  - HALLUCINATION [None]
  - HEART RATE INCREASED [None]
  - RESTLESSNESS [None]
  - SPEECH DISORDER [None]
